FAERS Safety Report 10983475 (Version 3)
Quarter: 2015Q2

REPORT INFORMATION
  Report Type: Spontaneous
  Country: JP (occurrence: JP)
  Receive Date: 20150403
  Receipt Date: 20150421
  Transmission Date: 20150821
  Serious: Yes (Other)
  Sender: FDA-Public Use
  Company Number: JP-GSKJP-JP2015JPN042765AA

PATIENT
  Sex: Male

DRUGS (1)
  1. ALLERMIST [Suspect]
     Active Substance: FLUTICASONE FUROATE
     Indication: RHINITIS ALLERGIC
     Route: 045

REACTIONS (1)
  - Oesophageal candidiasis [Unknown]
